FAERS Safety Report 18935083 (Version 1)
Quarter: 2021Q1

REPORT INFORMATION
  Report Type: Report from Study
  Country: US (occurrence: US)
  Receive Date: 20210224
  Receipt Date: 20210224
  Transmission Date: 20210420
  Serious: Yes (Other)
  Sender: FDA-Public Use
  Company Number: US-UCBSA-2020054538

PATIENT
  Sex: Male
  Weight: 100 kg

DRUGS (6)
  1. BRIVIACT [Suspect]
     Active Substance: BRIVARACETAM
     Dosage: 100 MILLIGRAM, 2X/DAY (BID)
     Route: 048
     Dates: start: 2015
  2. KEPPRA [Suspect]
     Active Substance: LEVETIRACETAM
     Indication: SEIZURE
  3. LACOSAMIDE. [Suspect]
     Active Substance: LACOSAMIDE
     Indication: SEIZURE
     Dosage: 300 MILLIGRAM, 2X/DAY (BID)
     Route: 048
     Dates: start: 2015
  4. LACOSAMIDE. [Suspect]
     Active Substance: LACOSAMIDE
     Dosage: THERAPY RESTARTED
  5. BRIVIACT [Suspect]
     Active Substance: BRIVARACETAM
     Dosage: THERAPY RESTARTED
  6. BRIVIACT [Suspect]
     Active Substance: BRIVARACETAM
     Indication: SEIZURE
     Dosage: 50 MILLIGRAM
     Route: 048

REACTIONS (4)
  - Aggression [Unknown]
  - Prescribed overdose [Unknown]
  - Drug ineffective [Unknown]
  - Seizure [Unknown]
